FAERS Safety Report 15537932 (Version 1)
Quarter: 2018Q4

REPORT INFORMATION
  Report Type: Spontaneous
  Country: US (occurrence: US)
  Receive Date: 20181022
  Receipt Date: 20181022
  Transmission Date: 20190205
  Serious: No
  Sender: FDA-Public Use
  Company Number: US-SA-2018SA287737

PATIENT
  Age: 36 Year
  Sex: Female

DRUGS (1)
  1. LEMTRADA [Suspect]
     Active Substance: ALEMTUZUMAB
     Dosage: UNK
     Route: 041
     Dates: start: 20181009, end: 20181011

REACTIONS (4)
  - Pallor [Unknown]
  - Headache [Unknown]
  - Chills [Unknown]
  - Chills [Unknown]

NARRATIVE: CASE EVENT DATE: 201810
